FAERS Safety Report 6232217-8 (Version None)
Quarter: 2009Q2

REPORT INFORMATION
  Report Type: 
  Country: None (occurrence: None)
  Receive Date: 20090615
  Receipt Date: 20090615
  Transmission Date: 20091009
  Serious: Yes (Life-Threatening, Other)
  Sender: FDA-Public Use
  Company Number: None

PATIENT
  Sex: Male
  Weight: 18.1439 kg

DRUGS (1)
  1. VYVANSE [Suspect]
     Indication: ATTENTION DEFICIT/HYPERACTIVITY DISORDER
     Dosage: 1-20 MG DAILY
     Dates: start: 20090513, end: 20090524

REACTIONS (14)
  - AGGRESSION [None]
  - ANGER [None]
  - BRUXISM [None]
  - DEPRESSED MOOD [None]
  - ERYTHEMA [None]
  - FEELING ABNORMAL [None]
  - HYPOPHAGIA [None]
  - INSOMNIA [None]
  - INTENTIONAL SELF-INJURY [None]
  - MUSCLE TWITCHING [None]
  - MYDRIASIS [None]
  - SCREAMING [None]
  - SOCIAL AVOIDANT BEHAVIOUR [None]
  - SUICIDAL IDEATION [None]
